FAERS Safety Report 25524440 (Version 1)
Quarter: 2025Q3

REPORT INFORMATION
  Report Type: Spontaneous
  Country: US (occurrence: None)
  Receive Date: 20250704
  Receipt Date: 20250704
  Transmission Date: 20251020
  Serious: Yes (Other)
  Sender: FDA-CTU
  Company Number: None

PATIENT
  Age: 27 Year
  Sex: Female
  Weight: 67.5 kg

DRUGS (3)
  1. CETIRIZINE [Suspect]
     Active Substance: CETIRIZINE HYDROCHLORIDE
     Dates: start: 20050101, end: 20250628
  2. Albuterol sulfate inhalant as needed [Concomitant]
  3. Vitafusion women^s multi vitamins [Concomitant]

REACTIONS (7)
  - Product dose omission in error [None]
  - Pruritus [None]
  - Drug dependence [None]
  - Withdrawal syndrome [None]
  - Anxiety [None]
  - Impaired work ability [None]
  - Loss of personal independence in daily activities [None]

NARRATIVE: CASE EVENT DATE: 20250601
